FAERS Safety Report 19254449 (Version 2)
Quarter: 2021Q2

REPORT INFORMATION
  Report Type: Spontaneous
  Country: US (occurrence: US)
  Receive Date: 20210513
  Receipt Date: 20210518
  Transmission Date: 20210717
  Serious: No
  Sender: FDA-Public Use
  Company Number: US-SA-2021SA156714

PATIENT
  Sex: Male

DRUGS (1)
  1. DUPIXENT [Suspect]
     Active Substance: DUPILUMAB
     Indication: ECZEMA
     Dosage: 300 MG, QOW
     Route: 058
     Dates: start: 20200903, end: 2021

REACTIONS (5)
  - Skin burning sensation [Unknown]
  - Eczema [Unknown]
  - Condition aggravated [Unknown]
  - Pain [Unknown]
  - Pruritus [Unknown]
